FAERS Safety Report 21916814 (Version 3)
Quarter: 2023Q1

REPORT INFORMATION
  Report Type: Report from Study
  Country: DE (occurrence: DE)
  Receive Date: 20230126
  Receipt Date: 20230201
  Transmission Date: 20230418
  Serious: Yes (Other)
  Sender: FDA-Public Use
  Company Number: DE-PFM-2022-07870

PATIENT
  Age: 83 Year
  Sex: Female
  Weight: 75 kg

DRUGS (15)
  1. BRAFTOVI [Suspect]
     Active Substance: ENCORAFENIB
     Indication: Colorectal cancer
     Dosage: 200 MG/ DAY
     Route: 048
     Dates: start: 20220628
  2. BRAFTOVI [Suspect]
     Active Substance: ENCORAFENIB
     Dosage: UNK
     Route: 048
     Dates: start: 20220705
  3. BRAFTOVI [Suspect]
     Active Substance: ENCORAFENIB
     Dosage: INCREASE FROM 100 TO 150 MG, PHYSICIAN DECISION.
     Route: 048
     Dates: start: 20220712, end: 20220725
  4. BRAFTOVI [Suspect]
     Active Substance: ENCORAFENIB
     Dosage: UNK
     Route: 048
     Dates: start: 20220802
  5. BRAFTOVI [Suspect]
     Active Substance: ENCORAFENIB
     Dosage: 100 MG/DAY
     Route: 048
  6. BRAFTOVI [Suspect]
     Active Substance: ENCORAFENIB
     Dosage: 220 MG/DAY
     Route: 048
  7. CETUXIMAB [Suspect]
     Active Substance: CETUXIMAB
     Indication: Colorectal cancer
     Dosage: 165 MG/M2, WEEKLY (LIQUID DILUTION)
     Route: 042
     Dates: start: 20220628, end: 20220726
  8. CETUXIMAB [Suspect]
     Active Substance: CETUXIMAB
     Dosage: REDUCED FROM 300 MG/M2 TO 165 MG/M2  (LIQUID DILUTION)
     Route: 042
     Dates: start: 20221004
  9. CETUXIMAB [Suspect]
     Active Substance: CETUXIMAB
     Dosage: 165 MG/M2, WEEKLY
     Route: 042
  10. VERAPAMIL HYDROCHLORIDE [Concomitant]
     Active Substance: VERAPAMIL HYDROCHLORIDE
     Indication: Atrial fibrillation
     Dosage: 5 MG, BID (2/DAY)
     Route: 048
  11. FLUTICASONE PROPIONATE [Concomitant]
     Active Substance: FLUTICASONE PROPIONATE
     Indication: Asthma
     Dosage: 500 UG DAILY
     Route: 048
  12. SALMETEROL [SALMETEROL XINAFOATE] [Concomitant]
     Indication: Asthma
     Dosage: 50 UG DAILY
     Route: 048
  13. METHYLPREDNISOLONE ACETATE [Concomitant]
     Active Substance: METHYLPREDNISOLONE ACETATE
     Indication: Prophylaxis
     Dosage: 250 MG PER CYCLE
     Route: 042
     Dates: start: 20220628
  14. DIMETHINDENE [Concomitant]
     Active Substance: DIMETHINDENE
     Indication: Prophylaxis
     Dosage: 1 MG PER CYCLE
     Route: 042
     Dates: start: 20220628
  15. DOXYCYCLIN RATIOPHARM [Concomitant]
     Indication: Prophylaxis
     Dosage: 100 MG, DAILY
     Route: 048
     Dates: start: 20220628, end: 20220707

REACTIONS (10)
  - Severe acute respiratory syndrome [Recovered/Resolved]
  - Infection [Unknown]
  - Dyspnoea exertional [Unknown]
  - Product use issue [Unknown]
  - Abdominal pain upper [Unknown]
  - Headache [Recovered/Resolved]
  - Herpes zoster [Unknown]
  - Hypoaesthesia [Recovered/Resolved]
  - Visual impairment [Unknown]
  - Skin toxicity [Recovered/Resolved]

NARRATIVE: CASE EVENT DATE: 20220628
